FAERS Safety Report 13137790 (Version 5)
Quarter: 2017Q1

REPORT INFORMATION
  Report Type: Spontaneous
  Country: US (occurrence: US)
  Receive Date: 20170123
  Receipt Date: 20170123
  Transmission Date: 20170428
  Serious: No
  Sender: FDA-Public Use
  Company Number: US-UNITED THERAPEUTICS-UNT-2016-012950

PATIENT
  Age: 79 Year
  Sex: Female
  Weight: 115.19 kg

DRUGS (4)
  1. ORENITRAM [Suspect]
     Active Substance: TREPROSTINIL
     Indication: PULMONARY HYPERTENSION
     Dosage: 2.625 MG, TID
     Route: 048
     Dates: start: 20150924
  2. ADCIRCA [Concomitant]
     Active Substance: TADALAFIL
     Indication: PRODUCT USED FOR UNKNOWN INDICATION
  3. ORENITRAM [Suspect]
     Active Substance: TREPROSTINIL
     Dosage: UNK
     Route: 048
  4. ORENITRAM [Suspect]
     Active Substance: TREPROSTINIL
     Dosage: 3 MG, TID
     Route: 048

REACTIONS (5)
  - Insomnia [Unknown]
  - Diarrhoea [Unknown]
  - Nausea [Unknown]
  - Anal fissure [Unknown]
  - Decreased appetite [Unknown]

NARRATIVE: CASE EVENT DATE: 201608
